FAERS Safety Report 15209574 (Version 1)
Quarter: 2018Q3

REPORT INFORMATION
  Report Type: Spontaneous
  Country: RO (occurrence: RO)
  Receive Date: 20180727
  Receipt Date: 20180727
  Transmission Date: 20181010
  Serious: Yes (Hospitalization)
  Sender: FDA-Public Use
  Company Number: RO-LANNETT COMPANY, INC.-RO-2018LAN000872

PATIENT
  Age: 9 Month
  Sex: Male

DRUGS (1)
  1. ESOMEPRAZOLE MAGNESIUM. [Suspect]
     Active Substance: ESOMEPRAZOLE MAGNESIUM
     Indication: GASTROOESOPHAGEAL REFLUX DISEASE
     Dosage: 0.5 MG/KG, QD
     Route: 065

REACTIONS (1)
  - Meningoencephalitis bacterial [Recovering/Resolving]
